FAERS Safety Report 18549656 (Version 2)
Quarter: 2021Q1

REPORT INFORMATION
  Report Type: Spontaneous
  Country: CA (occurrence: CA)
  Receive Date: 20201126
  Receipt Date: 20210104
  Transmission Date: 20210419
  Serious: Yes (Other)
  Sender: FDA-Public Use
  Company Number: CA-SAMSUNG BIOEPIS-SB-2020-35411

PATIENT
  Age: 49 Year
  Sex: Female

DRUGS (1)
  1. INFLIXIMAB [Suspect]
     Active Substance: INFLIXIMAB
     Indication: COLITIS ULCERATIVE
     Route: 042

REACTIONS (6)
  - Clostridium difficile infection [Unknown]
  - Inappropriate schedule of product administration [Unknown]
  - Faecal calprotectin increased [Unknown]
  - Cough [Unknown]
  - Intentional product use issue [Unknown]
  - Off label use [Unknown]
